FAERS Safety Report 18599345 (Version 3)
Quarter: 2022Q3

REPORT INFORMATION
  Report Type: Spontaneous
  Country: JP (occurrence: JP)
  Receive Date: 20201210
  Receipt Date: 20220714
  Transmission Date: 20221026
  Serious: Yes (Hospitalization, Other)
  Sender: FDA-Public Use
  Company Number: JP-GLAXOSMITHKLINE-JP2020JPN216675

PATIENT

DRUGS (12)
  1. TRELEGY ELLIPTA [Suspect]
     Active Substance: FLUTICASONE FUROATE\UMECLIDINIUM BROMIDE\VILANTEROL TRIFENATATE
     Indication: Chronic obstructive pulmonary disease
     Dosage: 100 UG, QD
     Route: 055
     Dates: start: 20190607, end: 201910
  2. TRELEGY ELLIPTA [Suspect]
     Active Substance: FLUTICASONE FUROATE\UMECLIDINIUM BROMIDE\VILANTEROL TRIFENATATE
     Dosage: 100 ?G
     Route: 055
     Dates: start: 20191115
  3. DEXTROMETHORPHAN HYDROBROMIDE [Suspect]
     Active Substance: DEXTROMETHORPHAN HYDROBROMIDE
     Indication: Cough
     Dosage: 15 MG, TID
     Route: 048
     Dates: start: 20190607
  4. OPALMON [Suspect]
     Active Substance: LIMAPROST
     Indication: Lumbar spinal stenosis
     Dosage: 5 ?G, TID
     Route: 048
     Dates: start: 20191001
  5. SYMBICORT [Concomitant]
     Active Substance: BUDESONIDE\FORMOTEROL FUMARATE DIHYDRATE
     Dosage: UNK
     Route: 055
     Dates: end: 201906
  6. SYMBICORT [Concomitant]
     Active Substance: BUDESONIDE\FORMOTEROL FUMARATE DIHYDRATE
     Dosage: UNK
     Dates: start: 201910, end: 2019
  7. SPIRIVA [Concomitant]
     Active Substance: TIOTROPIUM BROMIDE MONOHYDRATE
     Dosage: UNK
     Dates: end: 201906
  8. SPIRIVA [Concomitant]
     Active Substance: TIOTROPIUM BROMIDE MONOHYDRATE
     Dosage: UNK
     Dates: start: 201910, end: 2019
  9. MUCOSOLVAN L TABLET [Concomitant]
     Indication: Productive cough
     Dosage: 45 MG, QD
     Route: 048
     Dates: start: 20190607
  10. FELBINAC [Concomitant]
     Active Substance: FELBINAC
     Indication: Pain in extremity
     Dosage: UNK %
     Dates: start: 20191001
  11. FELBINAC [Concomitant]
     Active Substance: FELBINAC
     Indication: Back pain
  12. FELBINAC [Concomitant]
     Active Substance: FELBINAC
     Indication: Condition aggravated

REACTIONS (12)
  - Pneumonia aspiration [Recovered/Resolved]
  - Pneumonia pneumococcal [Recovered/Resolved]
  - White blood cell count increased [Recovered/Resolved]
  - Oxygen saturation decreased [Recovered/Resolved]
  - Lumbar spinal stenosis [Not Recovered/Not Resolved]
  - Pain in extremity [Not Recovered/Not Resolved]
  - Pyrexia [Recovered/Resolved]
  - Dyspnoea [Recovered/Resolved]
  - PO2 decreased [Recovered/Resolved]
  - Spinal osteoarthritis [Recovered/Resolved]
  - Back pain [Recovered/Resolved]
  - Condition aggravated [Recovered/Resolved]

NARRATIVE: CASE EVENT DATE: 20191001
